FAERS Safety Report 12942557 (Version 1)
Quarter: 2016Q4

REPORT INFORMATION
  Report Type: Spontaneous
  Country: US (occurrence: US)
  Receive Date: 20161114
  Receipt Date: 20161114
  Transmission Date: 20170207
  Serious: No
  Sender: FDA-Public Use
  Company Number: US-ASTRAZENECA-2016SF11738

PATIENT
  Age: 85 Year
  Sex: Female
  Weight: 53.1 kg

DRUGS (9)
  1. ALPRAZOLAM. [Concomitant]
     Active Substance: ALPRAZOLAM
     Indication: ANXIETY
     Route: 048
  2. VIT D 3 [Concomitant]
     Indication: BONE DISORDER
     Route: 048
  3. BABY ASPIRIN [Concomitant]
     Active Substance: ASPIRIN
     Route: 048
  4. SYMBICORT [Suspect]
     Active Substance: BUDESONIDE\FORMOTEROL FUMARATE DIHYDRATE
     Dosage: 80/4.5 MCG ONE PUFF ONE TIMES A DAY
     Route: 055
     Dates: start: 20161011
  5. CALCIUM OTC [Concomitant]
     Route: 048
  6. SYMBICORT [Suspect]
     Active Substance: BUDESONIDE\FORMOTEROL FUMARATE DIHYDRATE
     Dosage: 80/4.5 MCG ONE PUFF TWO TIMES A DAY
     Route: 055
     Dates: start: 20160928, end: 20161010
  7. CARVEDILOL. [Concomitant]
     Active Substance: CARVEDILOL
     Indication: BLOOD PRESSURE ABNORMAL
     Route: 048
  8. MAGNESIUM OTC [Concomitant]
     Route: 048
  9. BIOTIN [Concomitant]
     Active Substance: BIOTIN
     Route: 048

REACTIONS (4)
  - Ageusia [Not Recovered/Not Resolved]
  - Dysphonia [Not Recovered/Not Resolved]
  - Drug ineffective [Not Recovered/Not Resolved]
  - Blood pressure increased [Unknown]

NARRATIVE: CASE EVENT DATE: 2016
